FAERS Safety Report 8416452-6 (Version None)
Quarter: 2012Q2

REPORT INFORMATION
  Report Type: 
  Country: None (occurrence: None)
  Receive Date: 20120606
  Receipt Date: 20120531
  Transmission Date: 20120825
  Serious: Yes (Other)
  Sender: FDA-Public Use
  Company Number: US-ROCHE-1037597

PATIENT
  Sex: Male
  Weight: 106.69 kg

DRUGS (6)
  1. RITUXAN [Suspect]
     Route: 042
     Dates: start: 20110607, end: 20111026
  2. RITUXAN [Suspect]
     Indication: NON-HODGKIN'S LYMPHOMA
     Dosage: MAINTENENCE DOSE
     Route: 042
  3. DOXORUBICIN HCL [Suspect]
     Indication: PRODUCT USED FOR UNKNOWN INDICATION
     Dates: start: 20110607, end: 20111026
  4. VINCRISTINE [Suspect]
     Indication: PRODUCT USED FOR UNKNOWN INDICATION
     Dates: start: 20110607, end: 20111026
  5. CYCLOPHOSPHAMIDE [Suspect]
     Indication: PRODUCT USED FOR UNKNOWN INDICATION
     Dates: start: 20110607, end: 20111026
  6. PREDNISONE TAB [Suspect]
     Indication: PRODUCT USED FOR UNKNOWN INDICATION
     Dates: start: 20110607, end: 20111026

REACTIONS (3)
  - HERPES ZOSTER [None]
  - WOUND [None]
  - HERPES SIMPLEX [None]
